FAERS Safety Report 21478733 (Version 2)
Quarter: 2022Q4

REPORT INFORMATION
  Report Type: Report from Study
  Country: US (occurrence: US)
  Receive Date: 20221019
  Receipt Date: 20221108
  Transmission Date: 20230113
  Serious: Yes (Hospitalization)
  Sender: FDA-Public Use
  Company Number: US-JNJFOC-20221031558

PATIENT
  Age: 73 Year
  Sex: Female
  Weight: 97.7 kg

DRUGS (3)
  1. SELEXIPAG [Suspect]
     Active Substance: SELEXIPAG
     Indication: Pulmonary hypertension
     Route: 048
  2. ELIQUIS [Concomitant]
     Active Substance: APIXABAN
  3. OPSUMIT [Concomitant]
     Active Substance: MACITENTAN

REACTIONS (3)
  - Hospitalisation [Unknown]
  - Urinary tract infection [Recovering/Resolving]
  - Upper-airway cough syndrome [Unknown]

NARRATIVE: CASE EVENT DATE: 20220101
